FAERS Safety Report 5991335-X (Version None)
Quarter: 2008Q4

REPORT INFORMATION
  Report Type: 
  Country: None (occurrence: None)
  Receive Date: 20081211
  Receipt Date: 20081205
  Transmission Date: 20090506
  Serious: Yes (Hospitalization)
  Sender: FDA-Public Use
  Company Number: JP-ASTRAZENECA-2008AP07474

PATIENT
  Age: 79 Year
  Sex: Female
  Weight: 44 kg

DRUGS (13)
  1. IRESSA [Suspect]
     Indication: LUNG ADENOCARCINOMA
     Route: 048
     Dates: start: 20070122, end: 20080519
  2. ALOSITOL [Concomitant]
     Route: 048
  3. LASIX [Concomitant]
     Route: 048
  4. DIOVAN [Concomitant]
     Route: 048
  5. MAGNESIUM OXIDE [Concomitant]
     Route: 048
  6. AMLODIN OD [Concomitant]
     Route: 048
  7. LANDSEN [Concomitant]
     Route: 048
  8. PURSENNID [Concomitant]
     Route: 048
  9. SELBEX [Concomitant]
     Route: 048
  10. LAXOBERON [Concomitant]
     Dosage: AS REQUIRED
     Route: 048
  11. OXYCONTIN [Concomitant]
     Route: 048
  12. OXINORM [Concomitant]
     Dosage: AS REQUIRED
     Route: 048
  13. VOLTAREN [Concomitant]
     Dosage: AS REQUIRED
     Route: 054

REACTIONS (2)
  - DEHYDRATION [None]
  - RENAL DISORDER [None]
